FAERS Safety Report 7622673-2 (Version None)
Quarter: 2011Q3

REPORT INFORMATION
  Report Type: 
  Country: None (occurrence: None)
  Receive Date: 20110712
  Receipt Date: 20110627
  Transmission Date: 20111222
  Serious: Yes (Hospitalization, Other)
  Sender: FDA-Public Use
  Company Number: 2011MA008131

PATIENT
  Age: 69 Year
  Sex: Female

DRUGS (4)
  1. HYDRALAZINE HCL [Concomitant]
  2. VERAPAMIL HYDROCHLORIDE [Suspect]
     Dosage: 120 MG;QD
  3. ESOMEPRAZOLE MAGNESIUM [Concomitant]
  4. FERROUS SULFATE TAB [Concomitant]

REACTIONS (8)
  - BLOOD CREATININE INCREASED [None]
  - TOXICITY TO VARIOUS AGENTS [None]
  - ASTHENIA [None]
  - PRESYNCOPE [None]
  - BRADYCARDIA [None]
  - ATRIOVENTRICULAR BLOCK COMPLETE [None]
  - HYPOTENSION [None]
  - CONFUSIONAL STATE [None]
